FAERS Safety Report 5205730-X (Version None)
Quarter: 2007Q1

REPORT INFORMATION
  Report Type: 
  Country: None (occurrence: None)
  Receive Date: 20070105
  Receipt Date: 20070105
  Transmission Date: 20070707
  Serious: Yes (Hospitalization)
  Sender: FDA-Public Use
  Company Number: None

PATIENT
  Age: 55 Year
  Sex: Male
  Weight: 119 kg

DRUGS (12)
  1. PREDNISONE [Suspect]
     Indication: COLITIS ULCERATIVE
     Dosage: 40 MG ONCE DAILY PO
     Route: 048
     Dates: start: 20060718
  2. GLIPIZIDE [Concomitant]
  3. METOPROLOL SUCCINATE [Concomitant]
  4. ROSIGLITAZONE [Concomitant]
  5. ALBUTEROL [Concomitant]
  6. IPRATROPIUM BROMIDE [Concomitant]
  7. GOSERELIN [Concomitant]
  8. CLOTRIMAZOLE [Concomitant]
  9. FLUTAMIDE [Concomitant]
  10. MESALAMINE [Concomitant]
  11. ZINC OXIDE [Concomitant]
  12. OMEPRAZOLE [Concomitant]

REACTIONS (2)
  - HYPERGLYCAEMIA [None]
  - HYPOTENSION [None]
